FAERS Safety Report 21569294 (Version 2)
Quarter: 2023Q4

REPORT INFORMATION
  Report Type: Report from Study
  Country: US (occurrence: US)
  Receive Date: 20221109
  Receipt Date: 20231006
  Transmission Date: 20240110
  Serious: No
  Sender: FDA-Public Use
  Company Number: US-SA-SAC20221108000281

PATIENT
  Age: 72 Year
  Sex: Female

DRUGS (2)
  1. TERIFLUNOMIDE [Suspect]
     Active Substance: TERIFLUNOMIDE
     Indication: Relapsing multiple sclerosis
     Dosage: UNK UNK, QD
     Route: 048
     Dates: start: 20220120
  2. AMBIEN [Concomitant]
     Active Substance: ZOLPIDEM TARTRATE
     Indication: Sleep disorder
     Dosage: HALF A TABLET OF GENERIC AMBIEN AT NIGHT FOR SLEEP

REACTIONS (1)
  - Cognitive disorder [Unknown]
